FAERS Safety Report 6057589-9 (Version None)
Quarter: 2009Q1

REPORT INFORMATION
  Report Type: 
  Country: None (occurrence: None)
  Receive Date: 20090127
  Receipt Date: 20090127
  Transmission Date: 20090719
  Serious: No
  Sender: FDA-Public Use
  Company Number: None

PATIENT
  Age: 61 Year
  Sex: Female
  Weight: 62.5964 kg

DRUGS (3)
  1. ACTONEL [Suspect]
     Indication: ARTHRALGIA
     Dosage: 35MG  ONE X A WEEK PO
     Route: 048
     Dates: start: 20080910, end: 20090113
  2. ACTONEL [Suspect]
     Indication: BONE PAIN
     Dosage: 35MG  ONE X A WEEK PO
     Route: 048
     Dates: start: 20080910, end: 20090113
  3. ACTONEL [Suspect]
     Indication: DRUG INTOLERANCE
     Dosage: 35MG  ONE X A WEEK PO
     Route: 048
     Dates: start: 20080910, end: 20090113

REACTIONS (4)
  - BONE PAIN [None]
  - DISCOMFORT [None]
  - FEELING ABNORMAL [None]
  - MOBILITY DECREASED [None]
